FAERS Safety Report 11317337 (Version 5)
Quarter: 2017Q2

REPORT INFORMATION
  Report Type: Report from Study
  Country: DE (occurrence: DE)
  Receive Date: 20150728
  Receipt Date: 20170504
  Transmission Date: 20170829
  Serious: Yes (Hospitalization, Other)
  Sender: FDA-Public Use
  Company Number: PHHY2014DE174188

PATIENT
  Sex: Female
  Weight: 55 kg

DRUGS (26)
  1. FORMOTEROL [Concomitant]
     Active Substance: FORMOTEROL
     Indication: CHRONIC OBSTRUCTIVE PULMONARY DISEASE
     Dosage: 24 UG, BID
     Route: 055
     Dates: start: 20110502
  2. SALBUTAMOL [Concomitant]
     Active Substance: ALBUTEROL
     Indication: CHRONIC OBSTRUCTIVE PULMONARY DISEASE
     Dosage: 0.2 MG, QD (AS NEEDED), PRIOR TO STUDY
     Route: 065
  3. CANDESARTAN. [Concomitant]
     Active Substance: CANDESARTAN
     Indication: PREHYPERTENSION
  4. ATROVENT [Concomitant]
     Active Substance: IPRATROPIUM BROMIDE
     Indication: CHRONIC OBSTRUCTIVE PULMONARY DISEASE
     Dosage: 1000 UG, QD
     Route: 065
     Dates: start: 20140409
  5. TAVOR (LORAZEPAM) [Concomitant]
     Active Substance: LORAZEPAM
     Indication: ANXIETY
     Route: 065
     Dates: start: 20140818, end: 20150304
  6. DAXAS [Concomitant]
     Active Substance: ROFLUMILAST
     Indication: PRODUCT USED FOR UNKNOWN INDICATION
     Dosage: 500 UG, UNK
     Route: 065
  7. PREDNISOLONE. [Suspect]
     Active Substance: PREDNISOLONE
     Indication: CHRONIC OBSTRUCTIVE PULMONARY DISEASE
     Dosage: 1 X UP TO 60MG
     Route: 048
     Dates: start: 20150301
  8. CANDESARTAN. [Concomitant]
     Active Substance: CANDESARTAN
     Indication: BLOOD PRESSURE ABNORMAL
     Route: 065
     Dates: start: 20140124
  9. MIRTAZAPIN AL [Concomitant]
     Indication: DEPRESSION
     Dosage: UNK, PRIOR O STUDY
     Route: 065
  10. FORMOTEROL CT [Concomitant]
     Active Substance: FORMOTEROL
     Indication: PRODUCT USED FOR UNKNOWN INDICATION
     Dosage: 12 UG, UNK
     Route: 065
  11. NO TREATMENT RECEIVED [Suspect]
     Active Substance: UNSPECIFIED INGREDIENT
     Indication: PRODUCT USED FOR UNKNOWN INDICATION
     Route: 065
  12. NEBILET [Concomitant]
     Active Substance: NEBIVOLOL
     Indication: BLOOD PRESSURE ABNORMAL
     Dosage: UNK, PRIOR TO STUDY
     Route: 065
  13. PREDNISOLONE. [Suspect]
     Active Substance: PREDNISOLONE
     Dosage: 10 MG, (60 MG WAS REDUCED TO 10 MG)
     Route: 048
  14. PREDNISOLON JENAPHARM [Concomitant]
     Dosage: UNK
     Route: 065
     Dates: start: 20140304
  15. MIFLONIDE [Suspect]
     Active Substance: BUDESONIDE
     Indication: CHRONIC OBSTRUCTIVE PULMONARY DISEASE
     Dosage: 0.8 MG, QD
     Route: 055
     Dates: start: 20130813
  16. CITALOPRAM HOLSTEN [Concomitant]
     Indication: DEPRESSION
     Dosage: 20 MG, UNK
     Route: 065
     Dates: start: 20131014, end: 20150422
  17. PANTOPRAZOL [Concomitant]
     Active Substance: PANTOPRAZOLE SODIUM
     Indication: OESOPHAGITIS
     Dosage: UNK, PRIOR TO STUDY
     Route: 065
  18. NOVALGIN [Concomitant]
     Active Substance: METAMIZOLE SODIUM
     Indication: PRODUCT USED FOR UNKNOWN INDICATION
     Route: 065
  19. SPIRIVA [Concomitant]
     Active Substance: TIOTROPIUM BROMIDE MONOHYDRATE
     Indication: CHRONIC OBSTRUCTIVE PULMONARY DISEASE
     Dosage: 18 UG, QD, PRIOR TO STUDY
     Route: 065
  20. SERTRALINE [Concomitant]
     Active Substance: SERTRALINE HYDROCHLORIDE
     Indication: DEPRESSION
     Route: 065
     Dates: start: 20150423
  21. TORASEMIDE [Concomitant]
     Active Substance: TORSEMIDE
     Indication: BLOOD PRESSURE ABNORMAL
     Dosage: UNK, PRIOR TO STUDY
     Route: 065
  22. ACC [Concomitant]
     Active Substance: ACETYLCYSTEINE
     Indication: PRODUCT USED FOR UNKNOWN INDICATION
     Dosage: 600 OT (UNITS NOT SPECIFIED), UNK
     Route: 065
  23. BEROTEC [Concomitant]
     Active Substance: FENOTEROL HYDROBROMIDE
     Indication: PRODUCT USED FOR UNKNOWN INDICATION
     Route: 065
  24. DEKRISTOL [Concomitant]
     Active Substance: CHOLECALCIFEROL
     Indication: OSTEOPOROSIS
     Dosage: 20000 OT, (20000 IE)
     Route: 065
     Dates: start: 20140818
  25. PREDNISOLON JENAPHARM [Concomitant]
     Indication: CHRONIC OBSTRUCTIVE PULMONARY DISEASE
     Dosage: UNK, PRIOR TO STUDY
     Route: 065
     Dates: end: 20140304
  26. TAVOR (LORAZEPAM) [Concomitant]
     Active Substance: LORAZEPAM
     Dosage: UNK
     Route: 065
     Dates: start: 20150304

REACTIONS (10)
  - Chronic obstructive pulmonary disease [Recovering/Resolving]
  - Exercise tolerance decreased [Not Recovered/Not Resolved]
  - Sleep apnoea syndrome [Recovering/Resolving]
  - Weight increased [Not Recovered/Not Resolved]
  - Osteoporotic fracture [Recovering/Resolving]
  - Pneumonia [Recovered/Resolved]
  - Osteoporosis [Recovering/Resolving]
  - Concomitant disease aggravated [Recovering/Resolving]
  - Chronic obstructive pulmonary disease [Recovered/Resolved]
  - Pain [Unknown]

NARRATIVE: CASE EVENT DATE: 20131213
